FAERS Safety Report 22328064 (Version 1)
Quarter: 2023Q2

REPORT INFORMATION
  Report Type: Spontaneous
  Country: CO (occurrence: CO)
  Receive Date: 20230516
  Receipt Date: 20230516
  Transmission Date: 20230721
  Serious: Yes (Hospitalization, Other)
  Sender: FDA-Public Use
  Company Number: CO-BAYER-2023A067105

PATIENT
  Age: 66 Year
  Sex: Female

DRUGS (1)
  1. XARELTO [Suspect]
     Active Substance: RIVAROXABAN
     Indication: Coagulopathy
     Dosage: 20 MG, QD
     Route: 048
     Dates: start: 2008, end: 20230511

REACTIONS (8)
  - Arrhythmia [Recovered/Resolved]
  - Bladder operation [Unknown]
  - Cardiac operation [Unknown]
  - Cardiac pacemaker insertion [Unknown]
  - Haemorrhage [Unknown]
  - Malaise [Unknown]
  - Drug ineffective [Unknown]
  - Product expiration date issue [Unknown]

NARRATIVE: CASE EVENT DATE: 20210101
